FAERS Safety Report 4538266-X (Version None)
Quarter: 2004Q4

REPORT INFORMATION
  Report Type: 
  Country: None (occurrence: None)
  Receive Date: 20041223
  Receipt Date: 20041223
  Transmission Date: 20050328
  Serious: Yes (Disabling)
  Sender: FDA-Public Use
  Company Number: None

PATIENT
  Sex: Female
  Weight: 68.0396 kg

DRUGS (2)
  1. CELEBREX [Suspect]
     Indication: PAIN
     Dosage: 3 DAY ORAL
     Route: 048
     Dates: start: 20040404, end: 20041109
  2. CELEBREX [Suspect]
     Indication: SWELLING
     Dosage: 3 DAY ORAL
     Route: 048
     Dates: start: 20040404, end: 20041109

REACTIONS (1)
  - LOSS OF CONSCIOUSNESS [None]
